FAERS Safety Report 14656846 (Version 1)
Quarter: 2018Q1

REPORT INFORMATION
  Report Type: Spontaneous
  Country: US (occurrence: US)
  Receive Date: 20180319
  Receipt Date: 20180319
  Transmission Date: 20180509
  Serious: No
  Sender: FDA-Public Use
  Company Number: US-SA-2017SA093519

PATIENT
  Age: 76 Year
  Sex: Male
  Weight: 74.3 kg

DRUGS (5)
  1. FLUTICASONE. [Concomitant]
     Active Substance: FLUTICASONE
     Route: 065
  2. BISOPROLOL [Concomitant]
     Active Substance: BISOPROLOL
     Route: 065
  3. NASACORT ALLERGY 24HR [Suspect]
     Active Substance: TRIAMCINOLONE ACETONIDE
     Indication: POLYP
     Dosage: 1 SPARY TWICE DAILY
     Route: 065
     Dates: end: 20170519
  4. SIMVASTATIN. [Concomitant]
     Active Substance: SIMVASTATIN
     Route: 065
  5. ASMANEX [Concomitant]
     Active Substance: MOMETASONE FUROATE
     Route: 065

REACTIONS (2)
  - Anosmia [Unknown]
  - Product odour abnormal [Unknown]
